FAERS Safety Report 4817965-6 (Version None)
Quarter: 2005Q4

REPORT INFORMATION
  Report Type: 
  Country: None (occurrence: None)
  Receive Date: 20051101
  Receipt Date: 20051101
  Transmission Date: 20060501
  Serious: Yes (Hospitalization)
  Sender: FDA-Public Use
  Company Number: None

PATIENT
  Age: 84 Year
  Sex: Female
  Weight: 127.0072 kg

DRUGS (20)
  1. VALSARTAN [Suspect]
     Indication: HYPERTENSION
  2. FUROSEMIDE [Suspect]
     Indication: CORONARY ARTERY DISEASE
  3. FUROSEMIDE [Suspect]
     Indication: HYPERTENSION
  4. ISOSORBIDE 40 MG [Suspect]
  5. OXYBUTYNIN [Suspect]
  6. OMEPRAZOLE [Concomitant]
  7. NOVOLIN 70/30 [Concomitant]
  8. MIACALCIN [Concomitant]
  9. ISOSORBIDE [Concomitant]
  10. DIOVAN [Concomitant]
  11. POTASSIUM [Concomitant]
  12. OXYBUTYNIN [Concomitant]
  13. FUROSEMIDE [Concomitant]
  14. PLAVIX [Concomitant]
  15. ASPIRIN [Concomitant]
  16. VITAMIN D AND CALCIUM [Concomitant]
  17. ZOLOFT [Concomitant]
  18. ZOCOR [Concomitant]
  19. GABAPENTIN [Concomitant]
  20. CIPRO [Concomitant]

REACTIONS (2)
  - HYPOTENSION [None]
  - LOSS OF CONSCIOUSNESS [None]
